FAERS Safety Report 8990984 (Version 1)
Quarter: 2012Q4

REPORT INFORMATION
  Report Type: Spontaneous
  Country: CA (occurrence: None)
  Receive Date: 20121220
  Receipt Date: 20121220
  Transmission Date: 20130627
  Serious: Yes (Congenital Anomaly, Other)
  Sender: FDA-Public Use
  Company Number: 2012P1067034

PATIENT
  Age: 10 Month
  Sex: Female

DRUGS (1)
  1. PREDNISONE [Suspect]
     Route: 015

REACTIONS (3)
  - Palatal disorder [None]
  - Velopharyngeal incompetence [None]
  - Maternal drugs affecting foetus [None]
